FAERS Safety Report 9719621 (Version 3)
Quarter: 2013Q4

REPORT INFORMATION
  Report Type: Spontaneous
  Country: CA (occurrence: CA)
  Receive Date: 20131128
  Receipt Date: 20131210
  Transmission Date: 20140711
  Serious: Yes (Life-Threatening, Hospitalization, Other)
  Sender: FDA-Public Use
  Company Number: CA-ROCHE-1310317

PATIENT
  Age: 77 Year
  Sex: Female
  Weight: 72.64 kg

DRUGS (2)
  1. ACTIVASE [Suspect]
     Indication: CEREBROVASCULAR ACCIDENT
     Route: 040
     Dates: start: 20131121, end: 20131121
  2. ACTIVASE [Suspect]
     Dosage: INFUSION DURATION:ONE HOUR
     Route: 042

REACTIONS (7)
  - Rash [Recovered/Resolved]
  - Dyspnoea [Recovered/Resolved]
  - Swollen tongue [Recovered/Resolved]
  - Lip swelling [Recovered/Resolved]
  - Swelling face [Recovered/Resolved]
  - Speech disorder [Not Recovered/Not Resolved]
  - Hypersensitivity [Recovered/Resolved]
